FAERS Safety Report 10583012 (Version 1)
Quarter: 2014Q4

REPORT INFORMATION
  Report Type: Spontaneous
  Country: US (occurrence: US)
  Receive Date: 20141114
  Receipt Date: 20141114
  Transmission Date: 20150529
  Serious: Yes (Other)
  Sender: FDA-Public Use
  Company Number: US-CIPLA LTD.-2014US01756

PATIENT

DRUGS (2)
  1. LAMOTRIGINE. [Suspect]
     Active Substance: LAMOTRIGINE
     Indication: SEIZURE
     Dosage: 200 MG, TID
  2. FELBAMATE. [Suspect]
     Active Substance: FELBAMATE
     Dosage: 600 MG, TID

REACTIONS (11)
  - Road traffic accident [None]
  - Anticonvulsant drug level above therapeutic [None]
  - Ataxia [None]
  - Pain in extremity [None]
  - Urine ketone body present [None]
  - Blood potassium increased [None]
  - Refusal of treatment by patient [None]
  - Electrocardiogram QRS complex prolonged [Recovering/Resolving]
  - Blood glucose increased [None]
  - Seizure like phenomena [None]
  - Nystagmus [None]
